FAERS Safety Report 8588270-X (Version None)
Quarter: 2012Q3

REPORT INFORMATION
  Report Type: 
  Country: None (occurrence: None)
  Receive Date: 20120813
  Receipt Date: 20120726
  Transmission Date: 20120928
  Serious: No
  Sender: FDA-Public Use
  Company Number: US-009507513-1207USA012409

PATIENT

DRUGS (1)
  1. PEG-INTRON [Suspect]
     Indication: HEPATITIS C
     Route: 058

REACTIONS (3)
  - INJECTION SITE ERYTHEMA [None]
  - DEVICE MALFUNCTION [None]
  - ACCIDENTAL EXPOSURE [None]
